FAERS Safety Report 11906313 (Version 1)
Quarter: 2016Q1

REPORT INFORMATION
  Report Type: Spontaneous
  Country: US (occurrence: None)
  Receive Date: 20160108
  Receipt Date: 20160108
  Transmission Date: 20160526
  Serious: No
  Sender: FDA-Public Use
  Company Number: None

PATIENT
  Age: 62 Year
  Sex: Female

DRUGS (13)
  1. SINGLAIR [Concomitant]
  2. ALDACTONE [Concomitant]
     Active Substance: SPIRONOLACTONE
  3. CRESTOR [Concomitant]
     Active Substance: ROSUVASTATIN CALCIUM
  4. ATROVENT [Concomitant]
     Active Substance: IPRATROPIUM BROMIDE
  5. FLONASE [Concomitant]
     Active Substance: FLUTICASONE PROPIONATE
  6. PROTONIX [Concomitant]
     Active Substance: PANTOPRAZOLE SODIUM
  7. BOSULIF [Suspect]
     Active Substance: BOSUTINIB MONOHYDRATE
     Indication: CHRONIC MYELOID LEUKAEMIA
     Route: 048
     Dates: start: 20140121
  8. ZANTAC [Concomitant]
     Active Substance: RANITIDINE HYDROCHLORIDE
  9. HUMULIN NOS [Concomitant]
     Active Substance: INSULIN HUMAN
  10. COZAAR [Concomitant]
     Active Substance: LOSARTAN POTASSIUM
  11. NEURONTIN [Concomitant]
     Active Substance: GABAPENTIN
  12. TRAZODON [Concomitant]
     Active Substance: TRAZODONE HYDROCHLORIDE
  13. LASIX [Concomitant]
     Active Substance: FUROSEMIDE

REACTIONS (5)
  - Oropharyngeal pain [None]
  - Alopecia [None]
  - Diarrhoea [None]
  - Contusion [None]
  - Haematochezia [None]

NARRATIVE: CASE EVENT DATE: 201601
